FAERS Safety Report 10545878 (Version 1)
Quarter: 2014Q4

REPORT INFORMATION
  Report Type: Report from Study
  Country: US (occurrence: US)
  Receive Date: 20141027
  Receipt Date: 20141027
  Transmission Date: 20150529
  Serious: No
  Sender: FDA-Public Use
  Company Number: US-ABBVIE-14P-163-1281438-00

PATIENT
  Age: 41 Year
  Sex: Female
  Weight: 66.74 kg

DRUGS (7)
  1. FISH OIL [Concomitant]
     Active Substance: FISH OIL
     Indication: SUPPLEMENTATION THERAPY
  2. PAXIL [Concomitant]
     Active Substance: PAROXETINE HYDROCHLORIDE
     Indication: OBSESSIVE-COMPULSIVE DISORDER
  3. ATIVAN [Concomitant]
     Active Substance: LORAZEPAM
     Indication: ANXIETY
  4. TRAZODONE [Concomitant]
     Active Substance: TRAZODONE HYDROCHLORIDE
     Indication: INSOMNIA
  5. MULTIVITAMIN [Concomitant]
     Active Substance: VITAMINS
     Indication: VITAMIN SUPPLEMENTATION
  6. ATIVAN [Concomitant]
     Active Substance: LORAZEPAM
     Indication: PANIC DISORDER
  7. LUPRON DEPOT [Suspect]
     Active Substance: LEUPROLIDE ACETATE
     Indication: ENDOMETRIOSIS
     Dates: start: 201408

REACTIONS (1)
  - Pain [Recovered/Resolved]

NARRATIVE: CASE EVENT DATE: 201408
